FAERS Safety Report 7508620-2 (Version None)
Quarter: 2011Q2

REPORT INFORMATION
  Report Type: 
  Country: None (occurrence: None)
  Receive Date: 20110527
  Receipt Date: 20110301
  Transmission Date: 20111010
  Serious: No
  Sender: FDA-Public Use
  Company Number: A0917036A

PATIENT
  Age: 40 Year
  Sex: Male
  Weight: 85.3 kg

DRUGS (1)
  1. FLOLAN [Suspect]
     Dates: start: 20090521

REACTIONS (1)
  - MIGRAINE [None]
